FAERS Safety Report 5609454-6 (Version None)
Quarter: 2008Q1

REPORT INFORMATION
  Report Type: 
  Country: None (occurrence: None)
  Receive Date: 20080131
  Receipt Date: 20080124
  Transmission Date: 20080703
  Serious: No
  Sender: FDA-Public Use
  Company Number: US-BAXTER-2007BH008522

PATIENT
  Sex: Female

DRUGS (4)
  1. GAMMAGARD LIQUID [Suspect]
     Indication: NEURITIS
     Dosage: DOSE UNIT:UNKNOWN
     Route: 042
     Dates: start: 20071008, end: 20071012
  2. GAMMAGARD LIQUID [Suspect]
     Indication: INTENTIONAL DRUG MISUSE
     Dosage: DOSE UNIT:UNKNOWN
     Route: 042
     Dates: start: 20071008, end: 20071012
  3. GAMMAGARD LIQUID [Suspect]
     Dosage: DOSE UNIT:UNKNOWN
     Route: 042
     Dates: start: 20071008, end: 20071012
  4. GAMMAGARD LIQUID [Suspect]
     Dosage: DOSE UNIT:UNKNOWN
     Route: 042
     Dates: start: 20071008, end: 20071012

REACTIONS (1)
  - SERUM SICKNESS [None]
